FAERS Safety Report 8879845 (Version 1)
Quarter: 2012Q4

REPORT INFORMATION
  Report Type: 
  Country: GB (occurrence: GB)
  Receive Date: 20121031
  Receipt Date: 20121031
  Transmission Date: 20130627
  Serious: Yes (Death, Other)
  Sender: FDA-Public Use
  Company Number: GB-WATSON-2012-18180

PATIENT
  Sex: Female
  Weight: 70 kg

DRUGS (3)
  1. ZOLPIDEM TARTRATE (UNKNOWN) [Suspect]
     Indication: INSOMNIA
     Dosage: 10mg, UNK
     Route: 048
     Dates: start: 20120519
  2. TYSABRI [Suspect]
     Indication: MULTIPLE SCLEROSIS
     Dosage: 300mg 4 times a week
     Route: 042
     Dates: start: 201003, end: 20120511
  3. VENLAFAXINE [Concomitant]
     Indication: PRODUCT USED FOR UNKNOWN INDICATION
     Route: 065

REACTIONS (3)
  - Urinary tract obstruction [Unknown]
  - Oligohydramnios [Unknown]
  - Ureteric dilatation [Unknown]
